FAERS Safety Report 4846651-1 (Version None)
Quarter: 2005Q4

REPORT INFORMATION
  Report Type: 
  Country: None (occurrence: None)
  Receive Date: 20051206
  Receipt Date: 20051117
  Transmission Date: 20060501
  Serious: Yes (Other)
  Sender: FDA-Public Use
  Company Number: PHBS2005PT16967

PATIENT
  Age: 54 Year
  Sex: Male
  Weight: 72 kg

DRUGS (5)
  1. ZOMETA [Suspect]
     Indication: OSTEOPOROSIS
     Dosage: 4 MG, QMO
     Route: 042
     Dates: start: 20021001, end: 20050701
  2. ATENOLOL [Concomitant]
     Indication: HYPERTENSION
     Dosage: 50 MG/D
     Route: 048
  3. PAMIDRONATE DISODIUM [Concomitant]
     Dates: start: 20021001
  4. NSAID'S [Concomitant]
     Indication: BONE METABOLISM DISORDER
  5. CHOLESTEROL- AND TRIGLYCERIDE REDUCERS [Concomitant]
     Indication: HYPERCHOLESTEROLAEMIA

REACTIONS (4)
  - HYPERBARIC OXYGEN THERAPY [None]
  - JAW OPERATION [None]
  - OSTEOMYELITIS [None]
  - OSTEONECROSIS [None]
